FAERS Safety Report 13130035 (Version 2)
Quarter: 2023Q4

REPORT INFORMATION
  Report Type: Spontaneous
  Country: DE (occurrence: DE)
  Receive Date: 20170119
  Receipt Date: 20231220
  Transmission Date: 20240109
  Serious: Yes (Life-Threatening, Hospitalization)
  Sender: FDA-Public Use
  Company Number: DE-AUROBINDO-AUR-APL-2017-01265

PATIENT
  Age: 17 Year
  Sex: Male
  Weight: 60 kg

DRUGS (5)
  1. AMLODIPINE [Suspect]
     Active Substance: AMLODIPINE BESYLATE
     Indication: Hypertension
     Dosage: UNK
     Route: 048
  2. ENALAPRIL [Suspect]
     Active Substance: ENALAPRIL
     Indication: Hypertension
     Dosage: UNK
     Route: 048
  3. GADOBUTROL [Suspect]
     Active Substance: GADOBUTROL
     Indication: Magnetic resonance imaging
     Dosage: UNK
     Route: 042
  4. CYCLOSPORINE [Concomitant]
     Active Substance: CYCLOSPORINE
     Indication: Product used for unknown indication
     Dosage: UNK
     Route: 065
  5. MYCOPHENOLATE MOFETIL [Concomitant]
     Active Substance: MYCOPHENOLATE MOFETIL
     Indication: Product used for unknown indication
     Dosage: UNK
     Route: 065

REACTIONS (14)
  - Acute respiratory failure [Unknown]
  - Cardiogenic shock [Unknown]
  - Blood creatinine increased [Unknown]
  - Left ventricular failure [Unknown]
  - Blood loss anaemia [Unknown]
  - Loss of consciousness [Unknown]
  - Chest pain [Unknown]
  - Dizziness [Unknown]
  - Hypotension [Unknown]
  - Leukocytosis [Unknown]
  - Nausea [Unknown]
  - Neck pain [Unknown]
  - Paraesthesia [Unknown]
  - Overdose [Unknown]

NARRATIVE: CASE EVENT DATE: 20160303
